FAERS Safety Report 23480598 (Version 1)
Quarter: 2024Q1

REPORT INFORMATION
  Report Type: Spontaneous
  Country: DE (occurrence: DE)
  Receive Date: 20240205
  Receipt Date: 20240205
  Transmission Date: 20240410
  Serious: Yes (Hospitalization, Other)
  Sender: FDA-Public Use
  Company Number: DE-EMBRYOTOX-202210673

PATIENT
  Sex: Female
  Weight: 3.2 kg

DRUGS (4)
  1. REMICADE [Suspect]
     Active Substance: INFLIXIMAB
     Indication: Melkersson-Rosenthal syndrome
     Dosage: 120 [MG/2 WK ]
     Route: 064
     Dates: start: 20220116, end: 20221003
  2. NOVALGIN (METAMIZOLE SODIUM) [Concomitant]
     Active Substance: METAMIZOLE SODIUM
     Indication: Headache
     Route: 064
  3. FOLIC ACID [Concomitant]
     Active Substance: FOLIC ACID
     Indication: Prophylaxis of neural tube defect
     Route: 064
  4. ACETAMINOPHEN [Concomitant]
     Active Substance: ACETAMINOPHEN
     Indication: Headache
     Dosage: IF REQUIRED ; AS NECESSARY
     Route: 064
     Dates: start: 20220116, end: 20221003

REACTIONS (1)
  - Staphylococcal skin infection [Recovered/Resolved]
